FAERS Safety Report 4720857-4 (Version None)
Quarter: 2005Q3

REPORT INFORMATION
  Report Type: 
  Country: None (occurrence: None)
  Receive Date: 20050720
  Receipt Date: 20050711
  Transmission Date: 20060218
  Serious: Yes (Other)
  Sender: FDA-Public Use
  Company Number: 2005-07-0531

PATIENT
  Age: 55 Year
  Sex: Female

DRUGS (4)
  1. NASONEX [Suspect]
     Indication: ACUTE SINUSITIS
     Dosage: 2SPR/NARE BID NASAL SPRA
     Route: 045
     Dates: start: 20050620, end: 20050704
  2. CEFZIL [Suspect]
     Indication: BRONCHITIS
     Dosage: 500 MG QD ORAL
     Route: 048
     Dates: start: 20050620
  3. VITAMINS/MINERALS/                            DIETARY SUPPLEMENTS (NOS [Concomitant]
  4. .. [Concomitant]

REACTIONS (1)
  - AGEUSIA [None]
